FAERS Safety Report 7967197-8 (Version None)
Quarter: 2011Q4

REPORT INFORMATION
  Report Type: 
  Country: None (occurrence: None)
  Receive Date: 20111209
  Receipt Date: 20111205
  Transmission Date: 20120403
  Serious: Yes (Hospitalization, Other)
  Sender: FDA-Public Use
  Company Number: US-PFIZER INC-2011151663

PATIENT
  Sex: Female

DRUGS (1)
  1. CHANTIX [Suspect]
     Indication: SMOKING CESSATION THERAPY
     Dosage: UNK
     Route: 048
     Dates: start: 20070201, end: 20070319

REACTIONS (6)
  - CONFUSIONAL STATE [None]
  - AGITATION [None]
  - SUICIDE ATTEMPT [None]
  - DEPRESSION [None]
  - INSOMNIA [None]
  - HALLUCINATION [None]
